FAERS Safety Report 9184317 (Version 2)
Quarter: 2014Q2

REPORT INFORMATION
  Report Type: Spontaneous
  Country: US (occurrence: US)
  Receive Date: 20121031
  Receipt Date: 20140509
  Transmission Date: 20141212
  Serious: Yes (Hospitalization)
  Sender: FDA-Public Use
  Company Number: US-BAYER-2012-113653

PATIENT
  Age: 49 Year
  Sex: Female

DRUGS (11)
  1. YASMIN [Suspect]
     Dosage: UNK ;DAILY
     Route: 048
     Dates: start: 2007, end: 20081226
  2. AVELOX [Concomitant]
  3. SYMBICORT [Concomitant]
  4. PREDNISONE [Concomitant]
  5. LEVOPHED [Concomitant]
     Indication: HYPOTENSION
  6. EPINEPHRINE [Concomitant]
     Indication: HYPOTENSION
  7. DIURETICS [Concomitant]
  8. RENAL REPLACEMENT THERAPY [Concomitant]
  9. PEPCID [Concomitant]
  10. STRESS STRIODS [Concomitant]
  11. BALSALAZIDE [Concomitant]
     Dosage: 750 MG, UNK

REACTIONS (3)
  - Injury [None]
  - Cholelithiasis [None]
  - Pulmonary embolism [None]
